FAERS Safety Report 15274166 (Version 2)
Quarter: 2018Q3

REPORT INFORMATION
  Report Type: Spontaneous
  Country: US (occurrence: US)
  Receive Date: 20180814
  Receipt Date: 20180822
  Transmission Date: 20181010
  Serious: No
  Sender: FDA-Public Use
  Company Number: US-BIOGEN-2018BI00614405

PATIENT
  Sex: Male

DRUGS (1)
  1. PLEGRIDY [Suspect]
     Active Substance: PEGINTERFERON BETA-1A
     Indication: MULTIPLE SCLEROSIS
     Route: 058
     Dates: start: 20150617

REACTIONS (8)
  - Product storage error [Unknown]
  - Injection site warmth [Unknown]
  - Injection site erythema [Unknown]
  - General symptom [Unknown]
  - Pollakiuria [Unknown]
  - Drug dose omission [Unknown]
  - Injection site swelling [Unknown]
  - Fatigue [Unknown]
